FAERS Safety Report 23619325 (Version 3)
Quarter: 2024Q2

REPORT INFORMATION
  Report Type: Spontaneous
  Country: US (occurrence: US)
  Receive Date: 20240311
  Receipt Date: 20240411
  Transmission Date: 20240715
  Serious: Yes (Other)
  Sender: FDA-Public Use
  Company Number: US-BIOGEN-2024BI01254405

PATIENT
  Age: 66 Year
  Sex: Female
  Weight: 113.5 kg

DRUGS (34)
  1. AVONEX [Suspect]
     Active Substance: INTERFERON BETA-1A
     Indication: Multiple sclerosis
     Route: 050
     Dates: start: 19980201
  2. AVONEX [Suspect]
     Active Substance: INTERFERON BETA-1A
  3. AVONEX [Suspect]
     Active Substance: INTERFERON BETA-1A
  4. AVONEX [Suspect]
     Active Substance: INTERFERON BETA-1A
  5. AVONEX [Suspect]
     Active Substance: INTERFERON BETA-1A
  6. AVONEX [Suspect]
     Active Substance: INTERFERON BETA-1A
  7. AVONEX [Suspect]
     Active Substance: INTERFERON BETA-1A
  8. AVONEX [Suspect]
     Active Substance: INTERFERON BETA-1A
  9. AVONEX [Suspect]
     Active Substance: INTERFERON BETA-1A
  10. AVONEX [Suspect]
     Active Substance: INTERFERON BETA-1A
  11. AVONEX [Suspect]
     Active Substance: INTERFERON BETA-1A
  12. AVONEX [Suspect]
     Active Substance: INTERFERON BETA-1A
  13. AVONEX [Suspect]
     Active Substance: INTERFERON BETA-1A
  14. GILENYA [Suspect]
     Active Substance: FINGOLIMOD HYDROCHLORIDE
     Indication: Multiple sclerosis
     Route: 050
  15. COPAXONE [Suspect]
     Active Substance: GLATIRAMER ACETATE
     Indication: Multiple sclerosis
     Dosage: INJECT 1 ML BELOW THE SKIN 3 TIMES WEEKLY
     Route: 050
  16. COPAXONE [Suspect]
     Active Substance: GLATIRAMER ACETATE
     Dosage: 40 MG/ML SOSY INJECTION, INJECT 1ML BELOW THE SKIN 3 TIMES WEEKLY
     Route: 050
  17. AMPYRA [Suspect]
     Active Substance: DALFAMPRIDINE
     Indication: Multiple sclerosis
     Route: 050
     Dates: start: 202311, end: 20240311
  18. LIORSEAL (baclofen) [Concomitant]
     Indication: Product used for unknown indication
     Dosage: TAKE 2 TAB 3X A DAY
     Route: 050
     Dates: start: 20230328
  19. FLUTICASONE [Concomitant]
     Active Substance: FLUTICASONE
     Indication: Product used for unknown indication
     Dosage: INSTILL 2 SPRAYS IN EACH NOSTRIL EVERY DAY
     Route: 050
     Dates: start: 20240222
  20. FEMARA [Concomitant]
     Active Substance: LETROZOLE
     Indication: Product used for unknown indication
     Route: 050
  21. LISINOPRIL [Concomitant]
     Active Substance: LISINOPRIL
     Indication: Product used for unknown indication
     Route: 050
     Dates: start: 20240312
  22. MYRBETRIQ [Concomitant]
     Active Substance: MIRABEGRON
     Indication: Product used for unknown indication
     Route: 050
     Dates: start: 20230107
  23. DITROPAN XL (oxybutynin CR) [Concomitant]
     Indication: Product used for unknown indication
     Route: 050
     Dates: start: 20221205
  24. POLYETHYLENE GLYCOL [Concomitant]
     Active Substance: POLYETHYLENE GLYCOL
     Indication: Product used for unknown indication
     Route: 050
  25. LYRICA [Concomitant]
     Active Substance: PREGABALIN
     Indication: Product used for unknown indication
     Dosage: 1 CAPSULE BY MOUTH TWICE DAILY?1 CAP IN AM AND 2 CAPS AT BED TIME
     Route: 050
     Dates: start: 20231128
  26. XARELTO [Concomitant]
     Active Substance: RIVAROXABAN
     Indication: Product used for unknown indication
     Route: 050
     Dates: start: 20230109
  27. Maxalt MLT  (rizatriptan) [Concomitant]
     Indication: Product used for unknown indication
     Dosage: TAKE 1 TAB AT ONSET OF MIGRAINE. MAY REPEAT DOSE AFTER 2 HRS. MAX IN 24 HOUR
     Route: 050
     Dates: start: 20231128, end: 20240404
  28. DEMADEX (torsemide) [Concomitant]
     Indication: Product used for unknown indication
     Route: 050
     Dates: start: 20231116, end: 20240312
  29. HYDRODIURIL [Concomitant]
     Active Substance: HYDROCHLOROTHIAZIDE
     Indication: Product used for unknown indication
     Dosage: 1 TABLET DAILY WITH BREAKFAST
     Route: 050
  30. PRINIVIL [Concomitant]
     Active Substance: LISINOPRIL
     Indication: Product used for unknown indication
     Route: 050
  31. MACROBID [Concomitant]
     Active Substance: NITROFURANTOIN\NITROFURANTOIN MONOHYDRATE
     Indication: Product used for unknown indication
     Route: 050
     Dates: end: 20230323
  32. ZOFRAN [Concomitant]
     Active Substance: ONDANSETRON HYDROCHLORIDE
     Indication: Nausea
     Dosage: 1 TABLET BY MOUTH EVERY 8 HOURS AS NEEDED FOR NAUSEA
     Route: 050
     Dates: start: 20240311
  33. KLOR-CON [Concomitant]
     Active Substance: POTASSIUM CHLORIDE
     Indication: Product used for unknown indication
     Route: 050
     Dates: start: 20240311, end: 20240325
  34. PROCHLOROPERAZINE (COMPAZINE) [Concomitant]
     Indication: Nausea
     Dosage: 1 TABLET ORALLY EVERY 6 HOURS AS NEEDED FOR NAUSEA
     Route: 050
     Dates: start: 20240311, end: 20240311

REACTIONS (1)
  - Invasive ductal breast carcinoma [Unknown]

NARRATIVE: CASE EVENT DATE: 20240216
